FAERS Safety Report 5228336-5 (Version None)
Quarter: 2007Q1

REPORT INFORMATION
  Report Type: 
  Country: None (occurrence: None)
  Receive Date: 20070205
  Receipt Date: 20070125
  Transmission Date: 20070707
  Serious: Yes (Hospitalization)
  Sender: FDA-Public Use
  Company Number: FR-BAYER-200710071BFR

PATIENT
  Age: 85 Year
  Sex: Male
  Weight: 67 kg

DRUGS (13)
  1. CIPROFLOXACIN [Suspect]
     Indication: PYELONEPHRITIS
     Dosage: TOTAL DAILY DOSE: 400 MG  UNIT DOSE: 200 MG
     Route: 042
     Dates: start: 20061218, end: 20061220
  2. CIPROFLOXACIN [Suspect]
     Dosage: TOTAL DAILY DOSE: 200 MG  UNIT DOSE: 200 MG
     Route: 042
     Dates: start: 20061221, end: 20061227
  3. AUGMENTIN '125' [Suspect]
     Indication: PYELONEPHRITIS
     Dosage: TOTAL DAILY DOSE: 3 G  UNIT DOSE: 1 G
     Route: 042
     Dates: start: 20061218, end: 20061219
  4. MEMANTINE HCL [Concomitant]
     Indication: UNEVALUABLE EVENT
     Route: 065
     Dates: start: 20050401
  5. ATHYMIL [Concomitant]
     Indication: UNEVALUABLE EVENT
     Route: 065
     Dates: start: 20051101
  6. LEXOMIL [Concomitant]
     Indication: UNEVALUABLE EVENT
     Route: 065
     Dates: start: 20060501
  7. ZYPREXA [Concomitant]
     Indication: UNEVALUABLE EVENT
     Route: 065
     Dates: start: 20060701
  8. TEMESTA [Concomitant]
     Indication: UNEVALUABLE EVENT
     Route: 065
     Dates: start: 20060701
  9. ACETAMINOPHEN [Concomitant]
     Indication: UNEVALUABLE EVENT
     Route: 065
  10. ROCEPHIN [Concomitant]
     Indication: UNEVALUABLE EVENT
     Route: 042
     Dates: start: 20061219, end: 20070102
  11. HEPARIN [Concomitant]
     Indication: UNEVALUABLE EVENT
     Dates: start: 20061219, end: 20061227
  12. LASIX [Concomitant]
     Indication: UNEVALUABLE EVENT
     Route: 042
     Dates: start: 20061220
  13. CALCIPARINE [Concomitant]
     Indication: UNEVALUABLE EVENT
     Dates: start: 20061220

REACTIONS (2)
  - RENAL FAILURE ACUTE [None]
  - RHABDOMYOLYSIS [None]
